FAERS Safety Report 23692607 (Version 3)
Quarter: 2024Q2

REPORT INFORMATION
  Report Type: Spontaneous
  Country: US (occurrence: US)
  Receive Date: 20240401
  Receipt Date: 20240604
  Transmission Date: 20240716
  Serious: No
  Sender: FDA-Public Use
  Company Number: US-BAYER-2024A043864

PATIENT
  Age: 57 Year
  Sex: Female

DRUGS (1)
  1. CLIMARA PRO [Suspect]
     Active Substance: ESTRADIOL\LEVONORGESTREL
     Indication: Menopausal symptoms
     Dosage: 0.045/0.015
     Route: 062
     Dates: start: 20240209

REACTIONS (5)
  - Menopausal symptoms [Recovering/Resolving]
  - Device adhesion issue [None]
  - Product supply issue [None]
  - Product dose omission issue [None]
  - Wrong technique in product usage process [None]

NARRATIVE: CASE EVENT DATE: 20240106
